FAERS Safety Report 20700993 (Version 1)
Quarter: 2022Q2

REPORT INFORMATION
  Report Type: Spontaneous
  Country: US (occurrence: None)
  Receive Date: 20220411
  Receipt Date: 20220411
  Transmission Date: 20220721
  Serious: Yes (Other)
  Sender: FDA-Public Use
  Company Number: None

PATIENT
  Age: 76 Year
  Sex: Female
  Weight: 82.8 kg

DRUGS (12)
  1. BEBTELOVIMAB [Suspect]
     Active Substance: BEBTELOVIMAB
     Indication: COVID-19
     Dosage: OTHER FREQUENCY : ONE TIME;?
     Route: 040
     Dates: start: 20220409, end: 20220409
  2. potassium cloride [Concomitant]
     Dates: start: 20220318
  3. LOSARTAN [Concomitant]
     Active Substance: LOSARTAN
     Dates: start: 20220120
  4. FLUTICASONE [Concomitant]
     Active Substance: FLUTICASONE
     Dates: start: 20211213
  5. METOPROLOL SUCCINATE [Concomitant]
     Active Substance: METOPROLOL SUCCINATE
     Dates: start: 20211209
  6. NIFEDIPINE [Concomitant]
     Active Substance: NIFEDIPINE
     Dates: start: 20211011
  7. LEFLUNOMIDE [Concomitant]
     Active Substance: LEFLUNOMIDE
  8. ESOMEPRAZOLE [Concomitant]
     Active Substance: ESOMEPRAZOLE
     Dates: start: 20210327
  9. PREDNISONE [Concomitant]
     Active Substance: PREDNISONE
     Dates: start: 20200718
  10. HYDROXYCHLOROQUINE [Concomitant]
     Active Substance: HYDROXYCHLOROQUINE
     Dates: start: 20200302
  11. BACILLUS COAGULANS [Concomitant]
     Active Substance: BACILLUS COAGULANS
     Dates: start: 20160712
  12. ALBUTEROL SULFATE [Concomitant]
     Active Substance: ALBUTEROL SULFATE
     Dates: start: 20160331

REACTIONS (3)
  - Blood pressure increased [None]
  - Sinus bradycardia [None]
  - Infusion related reaction [None]

NARRATIVE: CASE EVENT DATE: 20220409
